FAERS Safety Report 6197996-7 (Version None)
Quarter: 2009Q2

REPORT INFORMATION
  Report Type: 
  Country: None (occurrence: None)
  Receive Date: 20090521
  Receipt Date: 20090514
  Transmission Date: 20091009
  Serious: Yes (Hospitalization)
  Sender: FDA-Public Use
  Company Number: US-ELI_LILLY_AND_COMPANY-US200904004540

PATIENT
  Sex: Female

DRUGS (11)
  1. FORTEO [Suspect]
     Indication: OSTEOPOROSIS
     Dosage: 20 UG, DAILY (1/D)
     Dates: start: 20081110
  2. PREDNISONE [Concomitant]
     Indication: AUTOIMMUNE HEPATITIS
     Dates: start: 20080501
  3. POTASSIUM CHLORIDE [Concomitant]
  4. LISINOPRIL [Concomitant]
  5. SANDOSTATIN [Concomitant]
  6. PREVACID [Concomitant]
  7. AMITRIPTLINE HYDROCHLORIDE TAB [Concomitant]
  8. CELEBREX [Concomitant]
  9. ASPIRIN [Concomitant]
  10. CALCIUM + VITAMIN D [Concomitant]
  11. ACTONEL [Concomitant]

REACTIONS (1)
  - OSTEONECROSIS [None]
